FAERS Safety Report 21351117 (Version 1)
Quarter: 2022Q3

REPORT INFORMATION
  Report Type: Report from Study
  Country: US (occurrence: US)
  Receive Date: 20220919
  Receipt Date: 20220919
  Transmission Date: 20221027
  Serious: Yes (Death, Other)
  Sender: FDA-Public Use
  Company Number: US-GW PHARMA-2022-US-029927

PATIENT
  Sex: Male

DRUGS (12)
  1. EPIDIOLEX [Suspect]
     Active Substance: CANNABIDIOL
     Indication: Epilepsy
     Dosage: 2.2 MILLILITER
     Dates: start: 20210319
  2. ONFI [Concomitant]
     Active Substance: CLOBAZAM
     Dosage: UNK
  3. TOPIRAMATE [Concomitant]
     Active Substance: TOPIRAMATE
     Dosage: UNK
  4. CETIRIZINE HYDROCHLORIDE [Concomitant]
     Active Substance: CETIRIZINE HYDROCHLORIDE
     Dosage: UNK
  5. BACLOFEN [Concomitant]
     Active Substance: BACLOFEN
     Dosage: UNK
  6. CARNITOR [Concomitant]
     Active Substance: LEVOCARNITINE
     Dosage: 1GM/5ML
  7. IBUPROFEN [Concomitant]
     Active Substance: IBUPROFEN
     Dosage: 200 MILLIGRAM CAPLETS
  8. LORAZEPAM [Concomitant]
     Active Substance: LORAZEPAM
     Dosage: 2MG/ML, DROPS 30 ML
  9. MILK OF MAGNESIA [Concomitant]
     Active Substance: MAGNESIUM HYDROXIDE
  10. NYSTATIN [Concomitant]
     Active Substance: NYSTATIN
     Dosage: 100,000U/GM
  11. VITAMIN D3 [Concomitant]
     Active Substance: CHOLECALCIFEROL
     Dosage: 1,000 UNIT, SOFT GEL
  12. ALBUTEROL [Concomitant]
     Active Substance: ALBUTEROL
     Dosage: 0.083% 2.5MG/3ML

REACTIONS (1)
  - Death [Fatal]
